FAERS Safety Report 5217614-1 (Version None)
Quarter: 2007Q1

REPORT INFORMATION
  Report Type: 
  Country: None (occurrence: None)
  Receive Date: 20070124
  Receipt Date: 20060717
  Transmission Date: 20070707
  Serious: No
  Sender: FDA-Public Use
  Company Number: US-GLAXOSMITHKLINE-A0605627A

PATIENT
  Age: 60 Year
  Sex: Male
  Weight: 102.3 kg

DRUGS (4)
  1. PAXIL CR [Suspect]
     Indication: DRUG USE FOR UNKNOWN INDICATION
     Dosage: 37.5MG PER DAY
     Route: 048
     Dates: start: 20060419, end: 20060501
  2. LIPITOR [Concomitant]
  3. LUNESTA [Concomitant]
  4. PREVACID [Concomitant]

REACTIONS (1)
  - DRUG INEFFECTIVE [None]
